FAERS Safety Report 10654407 (Version 1)
Quarter: 2014Q4

REPORT INFORMATION
  Report Type: Report from Study
  Country: GB (occurrence: GB)
  Receive Date: 20141216
  Receipt Date: 20141216
  Transmission Date: 20150529
  Serious: Yes (Hospitalization)
  Sender: FDA-Public Use
  Company Number: PHFR2014GB008481

PATIENT
  Age: 51 Year
  Sex: Male

DRUGS (1)
  1. LDK378 [Suspect]
     Active Substance: CERITINIB
     Indication: PRODUCT USED FOR UNKNOWN INDICATION
     Route: 065

REACTIONS (9)
  - Night sweats [Unknown]
  - Bone swelling [Unknown]
  - Pyrexia [Unknown]
  - Tuberculosis [Unknown]
  - Fatigue [Unknown]
  - C-reactive protein increased [Unknown]
  - Lung infiltration [Unknown]
  - Malaise [Unknown]
  - Renal impairment [Not Recovered/Not Resolved]

NARRATIVE: CASE EVENT DATE: 20141203
